FAERS Safety Report 14272327 (Version 4)
Quarter: 2018Q1

REPORT INFORMATION
  Report Type: Report from Study
  Country: CA (occurrence: CA)
  Receive Date: 20171211
  Receipt Date: 20180217
  Transmission Date: 20180508
  Serious: Yes (Other)
  Sender: FDA-Public Use
  Company Number: CA-BRISTOL-MYERS SQUIBB COMPANY-BMS-2017-051925

PATIENT
  Age: 64 Year
  Sex: Female

DRUGS (1)
  1. ABATACEPT [Suspect]
     Active Substance: ABATACEPT
     Indication: RHEUMATOID ARTHRITIS
     Dosage: 750 MG, Q4WK
     Route: 042
     Dates: start: 20111215

REACTIONS (5)
  - Nail discolouration [Recovering/Resolving]
  - Blepharospasm [Unknown]
  - Gallbladder disorder [Unknown]
  - Gastrointestinal haemorrhage [Not Recovered/Not Resolved]
  - Breast disorder [Unknown]

NARRATIVE: CASE EVENT DATE: 20171115
